FAERS Safety Report 5723963-0 (Version None)
Quarter: 2008Q2

REPORT INFORMATION
  Report Type: 
  Country: None (occurrence: None)
  Receive Date: 20080428
  Receipt Date: 20080416
  Transmission Date: 20081010
  Serious: Yes (Other)
  Sender: FDA-Public Use
  Company Number: 2008003698

PATIENT
  Age: 72 Year
  Sex: Female
  Weight: 54.4316 kg

DRUGS (2)
  1. ROGAINE [Suspect]
     Indication: ALOPECIA
     Dosage: 1 TO 2 DROPPERFULS TWICE, TOPICAL
     Route: 061
     Dates: start: 20070801, end: 20080128
  2. LEVOTHYROXINE SODIUM [Concomitant]

REACTIONS (4)
  - DRUG INEFFECTIVE [None]
  - EYE IRRITATION [None]
  - HYPERSENSITIVITY [None]
  - OCULAR HYPERAEMIA [None]
